FAERS Safety Report 25124562 (Version 1)
Quarter: 2025Q1

REPORT INFORMATION
  Report Type: Spontaneous
  Country: FR (occurrence: FR)
  Receive Date: 20250326
  Receipt Date: 20250326
  Transmission Date: 20250409
  Serious: Yes (Hospitalization)
  Sender: MERCK SHARP & DOHME LLC
  Company Number: None

PATIENT
  Age: 54 Year
  Sex: Male
  Weight: 54 kg

DRUGS (14)
  1. KEYTRUDA [Suspect]
     Active Substance: PEMBROLIZUMAB
     Indication: Lung adenocarcinoma stage IV
     Route: 042
     Dates: start: 20250212, end: 20250212
  2. TRIMEBUTINE [Concomitant]
     Active Substance: TRIMEBUTINE
  3. TAZOBACTAM SODIUM [Suspect]
     Active Substance: TAZOBACTAM SODIUM
     Indication: Infection prophylaxis
     Route: 042
     Dates: start: 20250225, end: 20250307
  4. DESLORATADINE [Concomitant]
     Active Substance: DESLORATADINE
  5. PIPERACILLIN [Suspect]
     Active Substance: PIPERACILLIN
     Indication: Infection prophylaxis
     Route: 042
     Dates: start: 20250225, end: 20250307
  6. MORPHINE [Concomitant]
     Active Substance: MORPHINE
  7. LEUCOVORIN [Concomitant]
     Active Substance: LEUCOVORIN\LEUCOVORIN CALCIUM
  8. METOCLOPRAMIDE [Concomitant]
     Active Substance: METOCLOPRAMIDE
  9. CYAMEMAZINE [Concomitant]
     Active Substance: CYAMEMAZINE
  10. PEMETREXED [Suspect]
     Active Substance: PEMETREXED
     Indication: Lung adenocarcinoma stage IV
     Route: 042
     Dates: start: 20250212, end: 20250212
  11. PHLOROGLUCINOL [Concomitant]
     Active Substance: PHLOROGLUCINOL
  12. DIFFU-K, capsule [Concomitant]
  13. TRANEXAMIC ACID [Concomitant]
     Active Substance: TRANEXAMIC ACID
  14. CARBOPLATIN [Suspect]
     Active Substance: CARBOPLATIN
     Indication: Lung adenocarcinoma stage IV
     Route: 042
     Dates: start: 20250212, end: 20250212

REACTIONS (1)
  - Hepatic cytolysis [Recovering/Resolving]

NARRATIVE: CASE EVENT DATE: 20250302
